FAERS Safety Report 7397515-3 (Version None)
Quarter: 2011Q2

REPORT INFORMATION
  Report Type: 
  Country: None (occurrence: None)
  Receive Date: 20110401
  Receipt Date: 20110401
  Transmission Date: 20111010
  Serious: No
  Sender: FDA-Public Use
  Company Number: None

PATIENT
  Age: 68 Year
  Sex: Female
  Weight: 86.1834 kg

DRUGS (1)
  1. CEPHALEXIN [Suspect]
     Indication: REMOVAL OF FOREIGN BODY
     Dosage: 500MG 4XS DLY
     Dates: start: 20110222

REACTIONS (1)
  - MUSCLE SPASMS [None]
